FAERS Safety Report 10684006 (Version 3)
Quarter: 2019Q4

REPORT INFORMATION
  Report Type: Spontaneous
  Country: GB (occurrence: GB)
  Receive Date: 20141230
  Receipt Date: 20191115
  Transmission Date: 20200122
  Serious: Yes (Life-Threatening)
  Sender: FDA-Public Use
  Company Number: GB-009507513-1412GBR010599

PATIENT
  Age: 81 Year
  Sex: Male

DRUGS (9)
  1. ASPIRIN. [Suspect]
     Active Substance: ASPIRIN
     Indication: CARDIOVASCULAR EVENT PROPHYLAXIS
     Dosage: 75 MILLIGRAM, QD (EVERY MORNING)
     Route: 048
     Dates: end: 20141210
  2. METFORMIN [Suspect]
     Active Substance: METFORMIN HYDROCHLORIDE
     Dosage: 500 MILLIGRAM, QD
  3. BISOPROLOL [Suspect]
     Active Substance: BISOPROLOL
     Dosage: 2.5 MG, QD
  4. REPAGLINIDE. [Suspect]
     Active Substance: REPAGLINIDE
     Dosage: 3 MILLIGRAM, 0.5 DAY
  5. REPAGLINIDE. [Suspect]
     Active Substance: REPAGLINIDE
     Indication: DIABETES MELLITUS
     Dosage: 3 MILLIGRAM, QD
  6. METFORMIN [Suspect]
     Active Substance: METFORMIN HYDROCHLORIDE
     Indication: PRODUCT USED FOR UNKNOWN INDICATION
     Dosage: 500 MG, 0.5 DAY
  7. RAMIPRIL. [Suspect]
     Active Substance: RAMIPRIL
     Dosage: 2.5 MG, HS (EVERY NIGHT)
  8. SIMVASTATIN. [Suspect]
     Active Substance: SIMVASTATIN
     Dosage: 40 MILLIGRAM, HS (EVERY NIGHT)
     Route: 048
  9. CITALOPRAM [Suspect]
     Active Substance: CITALOPRAM HYDROBROMIDE
     Dosage: 40 MG, QD

REACTIONS (1)
  - Oesophageal perforation [Unknown]

NARRATIVE: CASE EVENT DATE: 20141210
